FAERS Safety Report 4502492-6 (Version None)
Quarter: 2004Q3

REPORT INFORMATION
  Report Type: 
  Country: None (occurrence: None)
  Receive Date: 20040928
  Receipt Date: 20040629
  Transmission Date: 20050211
  Serious: No
  Sender: FDA-Public Use
  Company Number: 04P-163-0265059-00

PATIENT
  Age: 76 Year
  Sex: Male
  Weight: 83.9154 kg

DRUGS (10)
  1. HUMIRA [Suspect]
     Indication: RHEUMATOID ARTHRITIS
     Dosage: 40 MG, 1 IN 2 WK, SUBCUTANEOUS
     Route: 058
     Dates: start: 20031001
  2. COUMADIN [Concomitant]
  3. DICLOFENAC SODIUM [Concomitant]
  4. ACETYLSALICYLIC ACID [Concomitant]
  5. FUROSEMIDE [Concomitant]
  6. RAMIPRIL [Concomitant]
  7. POTASSIUM [Concomitant]
  8. ATORVASTATIN [Concomitant]
  9. ESOMEPRAZOLE [Concomitant]
  10. METHOTREXATE [Concomitant]

REACTIONS (1)
  - HERPES ZOSTER [None]
